FAERS Safety Report 8776740 (Version 1)
Quarter: 2012Q4

REPORT INFORMATION
  Report Type: 
  Country: CN (occurrence: CN)
  Receive Date: 20120911
  Receipt Date: 20120911
  Transmission Date: 20130627
  Serious: Yes (Other)
  Sender: FDA-Public Use
  Company Number: CN-PFIZER INC-2012217981

PATIENT
  Age: 78 Year
  Sex: Male
  Weight: 60 kg

DRUGS (1)
  1. TAZOCIN [Suspect]
     Indication: LUNG INFECTION
     Dosage: 4.5 g, 1x/day
     Route: 041
     Dates: start: 20090203, end: 20090203

REACTIONS (7)
  - Laryngeal oedema [Recovered/Resolved]
  - Anaphylactic shock [Recovered/Resolved]
  - Rash [Recovered/Resolved]
  - Blood pH decreased [None]
  - PCO2 increased [None]
  - PO2 decreased [None]
  - Base excess decreased [None]
